FAERS Safety Report 5109313-1 (Version None)
Quarter: 2006Q3

REPORT INFORMATION
  Report Type: 
  Country: None (occurrence: None)
  Receive Date: 20060920
  Receipt Date: 20051229
  Transmission Date: 20061208
  Serious: Yes (Hospitalization)
  Sender: FDA-Public Use
  Company Number: SE-GLAXOSMITHKLINE-B0405035A

PATIENT
  Age: 77 Year
  Sex: Female

DRUGS (12)
  1. LAMICTAL [Suspect]
     Route: 048
     Dates: start: 20051015, end: 20051112
  2. ORUDIS [Concomitant]
  3. UNKNOWN DRUG [Concomitant]
  4. UNKNOWN DRUG [Concomitant]
  5. ACETAMINOPHEN [Concomitant]
  6. PROPAVAN [Concomitant]
  7. LEVAXIN [Concomitant]
  8. OXASCAND [Concomitant]
  9. ELOCON [Concomitant]
  10. LAKTULOS [Concomitant]
     Route: 048
  11. REMERON [Concomitant]
  12. TRIOBE [Concomitant]

REACTIONS (2)
  - LIVER DISORDER [None]
  - THROMBOCYTOPENIA [None]
